FAERS Safety Report 9507217 (Version 2)
Quarter: 2013Q3

REPORT INFORMATION
  Report Type: Spontaneous
  Country: US (occurrence: None)
  Receive Date: 20130904
  Receipt Date: 20130909
  Transmission Date: 20140515
  Serious: Yes (Other)
  Sender: FDA-Public Use
  Company Number: AUR-APL-2013-07212

PATIENT
  Age: 36 Year
  Sex: Male
  Weight: 68.9 kg

DRUGS (3)
  1. ZOLPIDEM (ZOLPIDEM) [Suspect]
     Indication: PRODUCT USED FOR UNKNOWN INDICATION
     Dosage: STOPPED
     Dates: start: 200307
  2. DULOXETINE [Suspect]
     Dosage: STOPPED
  3. INSULIN (INSULIN) [Concomitant]

REACTIONS (4)
  - Hyperglycaemia [None]
  - Palpitations [None]
  - Sleep-related eating disorder [None]
  - Drug interaction [None]
